FAERS Safety Report 5527494-2 (Version None)
Quarter: 2007Q4

REPORT INFORMATION
  Report Type: 
  Country: None (occurrence: None)
  Receive Date: 20071128
  Receipt Date: 20071115
  Transmission Date: 20080405
  Serious: Yes (Other)
  Sender: FDA-Public Use
  Company Number: JP-BRISTOL-MYERS SQUIBB COMPANY-13504105

PATIENT
  Age: 48 Year
  Sex: Male

DRUGS (3)
  1. EFAVIRENZ [Suspect]
     Indication: HIV INFECTION
     Dosage: 17-AUG-2005 STARTED 600 MG CAPUSULE OF EFAVIRENZ, 600 MG DAILY.RESTARTED ON 01-AUG-2006.
     Route: 048
     Dates: start: 20060801
  2. ZEFIX [Suspect]
     Indication: HEPATITIS B
     Route: 048
     Dates: start: 20060801
  3. KALETRA [Suspect]
     Indication: HIV INFECTION
     Dosage: DOSAGE FORM = CAPSULES. 6 CAPSULES/D 16MAY06 TO 31MAY06.RESTARTED ON 01-AUG-2006.
     Route: 048
     Dates: start: 20060801

REACTIONS (1)
  - HYPERLACTACIDAEMIA [None]
